FAERS Safety Report 4599478-2 (Version None)
Quarter: 2005Q1

REPORT INFORMATION
  Report Type: 
  Country: None (occurrence: None)
  Receive Date: 20050303
  Receipt Date: 20050216
  Transmission Date: 20050727
  Serious: Yes (Death)
  Sender: FDA-Public Use
  Company Number: AZAUS200500066

PATIENT
  Age: 78 Year
  Sex: Female
  Weight: 66.6 kg

DRUGS (2)
  1. VIDAZA [Suspect]
     Indication: MYELODYSPLASTIC SYNDROME
     Dosage: (125 MG, DAILY X 7 DAYS (SKIP SAT + SUN]), SUBCUTANEOUS
     Route: 058
     Dates: start: 20050125, end: 20050202
  2. AMIFOSTINE (AMIFOSTINE) [Concomitant]

REACTIONS (2)
  - BACTERIAL SEPSIS [None]
  - PANCYTOPENIA [None]
